FAERS Safety Report 6935050-4 (Version None)
Quarter: 2010Q3

REPORT INFORMATION
  Report Type: 
  Country: None (occurrence: None)
  Receive Date: 20100822
  Receipt Date: 20100811
  Transmission Date: 20110219
  Serious: Yes (Death, Other)
  Sender: FDA-Public Use
  Company Number: PHHY2010BR53249

PATIENT
  Sex: Female

DRUGS (10)
  1. DIOVAN [Suspect]
     Indication: HYPERTENSION
     Dosage: 1 TABLET (80 MG) PER DAY
     Route: 048
  2. PROPAFENONE HCL [Concomitant]
     Indication: CARDIAC DISORDER
     Dosage: HALF TABLET IN THE MORNING AND HALF TABLET AT NIGHT
     Route: 048
  3. TICLID [Concomitant]
     Indication: CARDIAC DISORDER
     Dosage: 1 TABLET PER DAY
     Route: 048
  4. PROLOPA [Concomitant]
     Indication: PARKINSON'S DISEASE
     Dosage: 1 TABLET AND A HALF PER DAY
     Route: 048
  5. CODEINE [Concomitant]
     Dosage: 50 MG, UNK
  6. ACETAMINOPHEN [Concomitant]
     Dosage: 200 MG, UNK
  7. OMEPRAZOLE [Concomitant]
     Dosage: 20 MG, UNK
     Route: 048
  8. AMITRIPTYLINE HCL [Concomitant]
     Dosage: 20 MG, UNK
     Route: 048
  9. ULTRACET [Concomitant]
     Indication: KYPHOSIS
     Dosage: 1 TABLET PER DAY IN ALTERNATE DAYS
     Route: 048
  10. RIVOTRIL [Concomitant]
     Indication: SLEEP DISORDER
     Dosage: 1 TABLET AT NIGHT
     Route: 048

REACTIONS (3)
  - ARRHYTHMIA [None]
  - KYPHOSIS [None]
  - VENTRICULAR FIBRILLATION [None]
